FAERS Safety Report 4398505-5 (Version None)
Quarter: 2004Q3

REPORT INFORMATION
  Report Type: 
  Country: None (occurrence: None)
  Receive Date: 20040715
  Receipt Date: 20011126
  Transmission Date: 20050211
  Serious: Yes (Congenital Anomaly)
  Sender: FDA-Public Use
  Company Number: CA-GLAXOSMITHKLINE-A0168311A

PATIENT
  Sex: Female
  Weight: 2.7 kg

DRUGS (7)
  1. AMERGE [Suspect]
     Indication: MIGRAINE
     Dosage: 2.5MG UNKNOWN
     Route: 048
     Dates: start: 20010208, end: 20010209
  2. TYLENOL [Concomitant]
     Indication: MIGRAINE
  3. CODEINE [Concomitant]
     Indication: HEADACHE
  4. ADVIL [Concomitant]
     Indication: ILL-DEFINED DISORDER
  5. ALCOHOL [Concomitant]
  6. FOLIC ACID [Concomitant]
  7. PRENATAL VITAMINS [Concomitant]

REACTIONS (4)
  - CARDIAC MURMUR [None]
  - CONGENITAL ATRIAL SEPTAL DEFECT [None]
  - EYELID PTOSIS [None]
  - PREMATURE BABY [None]
